APPROVED DRUG PRODUCT: LITHIUM CARBONATE
Active Ingredient: LITHIUM CARBONATE
Strength: 300MG
Dosage Form/Route: CAPSULE;ORAL
Application: A076243 | Product #001
Applicant: PHARMOBEDIENT CONSULTING LLC
Approved: Jun 27, 2002 | RLD: No | RS: No | Type: DISCN